FAERS Safety Report 25011365 (Version 1)
Quarter: 2025Q1

REPORT INFORMATION
  Report Type: Spontaneous
  Country: US (occurrence: US)
  Receive Date: 20250226
  Receipt Date: 20250226
  Transmission Date: 20250409
  Serious: No
  Sender: ROCHE
  Company Number: US-ROCHE-10000213173

PATIENT
  Age: 18 Year
  Sex: Female

DRUGS (1)
  1. ACTEMRA ACTPEN [Suspect]
     Active Substance: TOCILIZUMAB
     Indication: Polyarthritis
     Dosage: STRENGTH: 162 MG/0.9 ML
     Route: 058
     Dates: start: 202309

REACTIONS (4)
  - Product quality issue [Unknown]
  - Device defective [Unknown]
  - Off label use [Unknown]
  - No adverse event [Unknown]

NARRATIVE: CASE EVENT DATE: 20250215
